FAERS Safety Report 10032322 (Version 1)
Quarter: 2014Q1

REPORT INFORMATION
  Report Type: Spontaneous
  Country: US (occurrence: US)
  Receive Date: 20140324
  Receipt Date: 20140324
  Transmission Date: 20141002
  Serious: Yes (Other)
  Sender: FDA-Public Use
  Company Number: US-PFIZER INC-2014079280

PATIENT
  Sex: Female

DRUGS (6)
  1. LYRICA [Suspect]
     Dosage: UNK
  2. DEPO-PROVERA [Suspect]
  3. VIMPAT [Suspect]
     Indication: GRAND MAL CONVULSION
  4. ATIVAN [Suspect]
  5. TOPAMAX [Suspect]
  6. PAXIL [Suspect]

REACTIONS (4)
  - Hallucination [Unknown]
  - Nightmare [Unknown]
  - Night sweats [Unknown]
  - Dizziness [Unknown]
